FAERS Safety Report 8791249 (Version 1)
Quarter: 2012Q4

REPORT INFORMATION
  Report Type: Spontaneous
  Country: US (occurrence: None)
  Receive Date: 20120914
  Receipt Date: 20120914
  Transmission Date: 20130627
  Serious: Yes (Hospitalization)
  Sender: FDA-Public Use
  Company Number: None

PATIENT
  Age: 49 Year
  Sex: Female
  Weight: 80 kg

DRUGS (5)
  1. LOPERAMIDE [Suspect]
     Dosage: chronic
  2. BENADRYL [Suspect]
     Dosage: chronic
  3. ALPRAZOLAM [Suspect]
  4. CHLORPHENIRAMINE [Suspect]
  5. ZOLOFT [Suspect]

REACTIONS (3)
  - Opiates positive [None]
  - Unresponsive to stimuli [None]
  - Respiratory disorder [None]
